FAERS Safety Report 26127018 (Version 1)
Quarter: 2025Q4

REPORT INFORMATION
  Report Type: Spontaneous
  Country: US (occurrence: None)
  Receive Date: 20251205
  Receipt Date: 20251205
  Transmission Date: 20260118
  Serious: No
  Sender: FDA-CTU
  Company Number: None

PATIENT
  Sex: Female

DRUGS (5)
  1. RETACRIT [Suspect]
     Active Substance: EPOETIN ALFA-EPBX
     Indication: Chronic kidney disease
     Dosage: 1 ML  : ONCE A WEEK SUBCUTANEOUS?
     Route: 058
  2. RETACRIT [Suspect]
     Active Substance: EPOETIN ALFA-EPBX
     Indication: Congestive hepatopathy
  3. ELIQUIS [Concomitant]
     Active Substance: APIXABAN
  4. MIDODRINE [Concomitant]
     Active Substance: MIDODRINE
  5. ENOXAPARIN [Concomitant]
     Active Substance: ENOXAPARIN

REACTIONS (3)
  - Bladder cancer recurrent [None]
  - Hypotension [None]
  - Thrombosis [None]
